FAERS Safety Report 12283025 (Version 3)
Quarter: 2016Q2

REPORT INFORMATION
  Report Type: Report from Study
  Country: US (occurrence: US)
  Receive Date: 20160419
  Receipt Date: 20160621
  Transmission Date: 20160815
  Serious: Yes (Life-Threatening, Hospitalization, Other)
  Sender: FDA-Public Use
  Company Number: US-ABBVIE-16K-163-1605152-00

PATIENT
  Sex: Female
  Weight: 43.58 kg

DRUGS (2)
  1. OPIUM. [Concomitant]
     Active Substance: OPIUM
     Indication: PRODUCT USED FOR UNKNOWN INDICATION
  2. HUMIRA [Suspect]
     Active Substance: ADALIMUMAB
     Indication: CROHN^S DISEASE
     Route: 058
     Dates: start: 2014, end: 2016

REACTIONS (12)
  - Appendicectomy [Unknown]
  - Anal fistula [Unknown]
  - C-reactive protein increased [Unknown]
  - Laparoscopy [Unknown]
  - Skin lesion [Unknown]
  - Nephropathy [Unknown]
  - Surgery [Unknown]
  - Malaise [Not Recovered/Not Resolved]
  - Cholecystectomy [Unknown]
  - Hepatic enzyme increased [Unknown]
  - Infection [Unknown]
  - Terminal state [Not Recovered/Not Resolved]

NARRATIVE: CASE EVENT DATE: 2014
